FAERS Safety Report 18683496 (Version 1)
Quarter: 2020Q4

REPORT INFORMATION
  Report Type: Report from Study
  Country: US (occurrence: US)
  Receive Date: 20201230
  Receipt Date: 20201230
  Transmission Date: 20210114
  Serious: Yes (Other)
  Sender: FDA-Public Use
  Company Number: US-GLAXOSMITHKLINE-US2020AMR245236

PATIENT
  Sex: Female

DRUGS (3)
  1. NIRAPARIB [Suspect]
     Active Substance: NIRAPARIB
     Indication: LUNG NEOPLASM MALIGNANT
     Dosage: 300 MG, QD
     Route: 065
     Dates: start: 20201202
  2. NIRAPARIB [Suspect]
     Active Substance: NIRAPARIB
     Indication: SMALL CELL CARCINOMA
  3. NIRAPARIB [Suspect]
     Active Substance: NIRAPARIB
     Indication: BONE CANCER

REACTIONS (8)
  - Off label use [Unknown]
  - Heart rate increased [Unknown]
  - Product use in unapproved indication [Unknown]
  - Nausea [Recovering/Resolving]
  - Constipation [Recovering/Resolving]
  - Insomnia [Unknown]
  - Drug monitoring procedure not performed [Unknown]
  - Malignant neoplasm progression [Unknown]
